FAERS Safety Report 7003038-3 (Version None)
Quarter: 2010Q3

REPORT INFORMATION
  Report Type: 
  Country: None (occurrence: None)
  Receive Date: 20100920
  Receipt Date: 20100726
  Transmission Date: 20110219
  Serious: No
  Sender: FDA-Public Use
  Company Number: US-ASTRAZENECA-2010SE23694

PATIENT
  Sex: Female

DRUGS (6)
  1. SEROQUEL [Suspect]
     Indication: BIPOLAR DISORDER
     Dosage: 300-400 MG DAILY
     Route: 048
  2. SEROQUEL [Suspect]
     Indication: MAJOR DEPRESSION
     Dosage: 300-400 MG DAILY
     Route: 048
  3. CLONAZEPAM [Concomitant]
     Route: 048
  4. ZOLOFT [Concomitant]
     Route: 048
  5. LITHIUM [Concomitant]
     Route: 048
  6. INSULIN [Concomitant]

REACTIONS (8)
  - ADVERSE EVENT [None]
  - EXCESSIVE EYE BLINKING [None]
  - HYPERGLYCAEMIA [None]
  - MOUTH HAEMORRHAGE [None]
  - ORAL PAIN [None]
  - TARDIVE DYSKINESIA [None]
  - TONGUE DISORDER [None]
  - WEIGHT INCREASED [None]
